FAERS Safety Report 16171586 (Version 2)
Quarter: 2019Q2

REPORT INFORMATION
  Report Type: Spontaneous
  Country: US (occurrence: US)
  Receive Date: 20190408
  Receipt Date: 20190423
  Transmission Date: 20190711
  Serious: Yes (Hospitalization)
  Sender: FDA-Public Use
  Company Number: US-STEMLINE THERAPEUTICS, INC.-2019ST000014

PATIENT
  Sex: Male

DRUGS (2)
  1. ELZONRIS [Suspect]
     Active Substance: TAGRAXOFUSP-ERZS
     Indication: BLASTIC PLASMACYTOID DENDRITIC CELL NEOPLASIA
     Dosage: DAILY X5 DAYS-FIRST CYCLE
     Route: 042
     Dates: start: 20190221, end: 20190225
  2. ELZONRIS [Suspect]
     Active Substance: TAGRAXOFUSP-ERZS
     Dosage: SECOND CYCLE
     Route: 042
     Dates: start: 20190401

REACTIONS (6)
  - Capillary leak syndrome [Unknown]
  - Corona virus infection [Recovered/Resolved]
  - Capillary leak syndrome [Recovered/Resolved]
  - Hypoxia [Unknown]
  - Hypoxia [Recovered/Resolved]
  - Blood albumin decreased [Recovered/Resolved]

NARRATIVE: CASE EVENT DATE: 201904
